FAERS Safety Report 4683886-5 (Version None)
Quarter: 2005Q2

REPORT INFORMATION
  Report Type: 
  Country: None (occurrence: None)
  Receive Date: 20050607
  Receipt Date: 20050530
  Transmission Date: 20051028
  Serious: Yes (Other)
  Sender: FDA-Public Use
  Company Number: HU-ROCHE-405922

PATIENT
  Age: 58 Year
  Sex: Male

DRUGS (2)
  1. PEGASYS [Suspect]
     Route: 058
     Dates: start: 20050225
  2. COPEGUS [Concomitant]
     Route: 048
     Dates: start: 20050225

REACTIONS (3)
  - ANAEMIA [None]
  - MUSCLE SPASMS [None]
  - THROMBOCYTOPENIA [None]
